FAERS Safety Report 15403477 (Version 1)
Quarter: 2018Q3

REPORT INFORMATION
  Report Type: Spontaneous
  Country: RO (occurrence: RO)
  Receive Date: 20180919
  Receipt Date: 20180919
  Transmission Date: 20181010
  Serious: Yes (Hospitalization)
  Sender: FDA-Public Use
  Company Number: RO-MYLANLABS-2018M1066736

PATIENT
  Age: 81 Year
  Sex: Female

DRUGS (1)
  1. ZOLEDRONIC ACID [Suspect]
     Active Substance: ZOLEDRONIC ACID
     Indication: OSTEITIS DEFORMANS
     Route: 041

REACTIONS (7)
  - Acute kidney injury [Recovering/Resolving]
  - Osteonecrosis of jaw [Recovered/Resolved]
  - Multiple organ dysfunction syndrome [Recovering/Resolving]
  - Acute sinusitis [Recovered/Resolved]
  - Sepsis [Recovering/Resolving]
  - Respiratory failure [Recovering/Resolving]
  - Inflammation [Recovered/Resolved]
